FAERS Safety Report 19130781 (Version 1)
Quarter: 2021Q2

REPORT INFORMATION
  Report Type: Spontaneous
  Country: US (occurrence: US)
  Receive Date: 20210413
  Receipt Date: 20210413
  Transmission Date: 20210717
  Serious: No
  Sender: FDA-Public Use
  Company Number: US-ELI_LILLY_AND_COMPANY-US202104000632

PATIENT
  Age: 78 Year
  Sex: Female

DRUGS (1)
  1. TRULICITY [Suspect]
     Active Substance: DULAGLUTIDE
     Indication: PRODUCT USED FOR UNKNOWN INDICATION
     Dosage: 0.75 MG, UNKNOWN
     Route: 065
     Dates: start: 202103

REACTIONS (6)
  - Diarrhoea [Recovered/Resolved]
  - Abdominal discomfort [Recovered/Resolved]
  - Nausea [Recovered/Resolved]
  - Flatulence [Recovered/Resolved]
  - Duodenogastric reflux [Recovered/Resolved]
  - Eructation [Recovered/Resolved]

NARRATIVE: CASE EVENT DATE: 202103
